FAERS Safety Report 9877079 (Version 1)
Quarter: 2014Q1

REPORT INFORMATION
  Report Type: Spontaneous
  Country: US (occurrence: US)
  Receive Date: 20140206
  Receipt Date: 20140206
  Transmission Date: 20141002
  Serious: No
  Sender: FDA-Public Use
  Company Number: US-PFIZER INC-2014031091

PATIENT
  Age: 58 Year
  Sex: Male
  Weight: 124.72 kg

DRUGS (2)
  1. VIAGRA [Suspect]
     Dosage: 100 MG, AS NEEDED
  2. DIOVAN [Concomitant]
     Indication: HYPERTENSION
     Dosage: UNK, 1X/DAY

REACTIONS (1)
  - Drug ineffective [Unknown]
